FAERS Safety Report 7015315-0 (Version None)
Quarter: 2010Q3

REPORT INFORMATION
  Report Type: 
  Country: None (occurrence: None)
  Receive Date: 20100924
  Receipt Date: 20100924
  Transmission Date: 20110219
  Serious: Yes (Hospitalization)
  Sender: FDA-Public Use
  Company Number: None

PATIENT
  Age: 59 Year
  Sex: Male
  Weight: 72 kg

DRUGS (1)
  1. SERTRALINE HYDROCHLORIDE [Suspect]
     Indication: DEPRESSION
     Dosage: 1 TAB BID PO
     Route: 048
     Dates: start: 20100620, end: 20100628

REACTIONS (8)
  - AGITATION [None]
  - CEREBRAL ATROPHY [None]
  - CONFUSIONAL STATE [None]
  - CONVULSION [None]
  - FLUID INTAKE REDUCED [None]
  - HYPONATRAEMIA [None]
  - HYPOPHAGIA [None]
  - INCORRECT DOSE ADMINISTERED [None]
